FAERS Safety Report 8697325 (Version 2)
Quarter: 2013Q1

REPORT INFORMATION
  Report Type: Spontaneous
  Country: JP (occurrence: None)
  Receive Date: 20120717
  Receipt Date: 20130308
  Transmission Date: 20140127
  Serious: Yes (Hospitalization)
  Sender: FDA-Public Use
  Company Number: 2009JP007418

PATIENT
  Age: 69 Year
  Sex: Male
  Weight: 60 kg

DRUGS (27)
  1. PROGRAF (TACROLIMUS) CAPSULE [Suspect]
     Route: 048
     Dates: start: 20071010, end: 20090804
  2. PREDNISOLONE [Concomitant]
  3. BREDININ (MIZORIBINE) [Concomitant]
  4. ALENDRONATE SODIUM [Concomitant]
  5. OMEPRAZOLE [Concomitant]
  6. ONEALFA (ALFACALCIDOL) [Concomitant]
  7. PERSANTINE [Concomitant]
  8. LOSARTAN POTASSIUM [Concomitant]
  9. SALAGEN [Concomitant]
  10. LASIX [Concomitant]
  11. MUCOSTA (REBAMIPIDE) [Concomitant]
  12. KOLANTYL (METHYLCELLULOSE) [Concomitant]
  13. LOXONIN (LOXOPROFEN SODIUM) [Concomitant]
  14. KELNAC (PLAUNOTOL) [Concomitant]
  15. ACETAMINOPHEN [Concomitant]
  16. PRORENAL (LIMAPROST) [Concomitant]
  17. VESICARE [Concomitant]
  18. DIOVAN [Concomitant]
  19. ATELEC (CILNIDIPINE) [Concomitant]
  20. FERROMIA /00023520/ (FERROUS SODIUM CITRATE) [Concomitant]
  21. CINAL (ASCORBIC ACID, CALCIUM PANTOTHENATE) [Concomitant]
  22. MAGLAX [Concomitant]
  23. SULFAMETHOXAZOLE AND TRIMETHOPRIM [Concomitant]
  24. DEPAKENE /00228502/ (VALPROATE SODIUM) [Concomitant]
  25. BENZALIN /00036201/ (NITRAZEPAM) [Concomitant]
  26. MIYA BM (CLOSTRIDIUM BUTYRICUM) [Concomitant]
  27. LENDORMIN (BROTIZOLAM) [Concomitant]

REACTIONS (5)
  - Spinal compression fracture [None]
  - DECREASED APPETITE [None]
  - DIZZINESS POSTURAL [None]
  - Fall [None]
  - Pneumonia aspiration [None]
